FAERS Safety Report 4619291-7 (Version None)
Quarter: 2005Q2

REPORT INFORMATION
  Report Type: 
  Country: None (occurrence: None)
  Receive Date: 20050321
  Receipt Date: 20040206
  Transmission Date: 20051028
  Serious: Yes (Disabling, Other)
  Sender: FDA-Public Use
  Company Number: 2004-02-0421

PATIENT
  Age: 51 Year
  Sex: Male
  Weight: 82.1011 kg

DRUGS (6)
  1. PEG-INTRON [Suspect]
     Indication: HEPATITIS C
     Dosage: 120 MCG QW SUBCUTANEOUS; 60 MCG QW SUBCUTANEOUS
     Route: 058
     Dates: start: 20030701, end: 20031120
  2. PEG-INTRON [Suspect]
     Indication: HEPATITIS C
     Dosage: 120 MCG QW SUBCUTANEOUS; 60 MCG QW SUBCUTANEOUS
     Route: 058
     Dates: start: 20031121, end: 20031125
  3. REBETOL [Suspect]
     Indication: HEPATITIS C
     Dosage: 600 MG BID ORAL
     Route: 048
     Dates: start: 20030701, end: 20031125
  4. ATIVAN [Concomitant]
  5. REMERON [Concomitant]
  6. PROCRIT [Concomitant]

REACTIONS (2)
  - EAR PAIN [None]
  - HEARING IMPAIRED [None]
